FAERS Safety Report 4445995-5 (Version None)
Quarter: 2004Q3

REPORT INFORMATION
  Report Type: 
  Country: None (occurrence: None)
  Receive Date: 20040910
  Receipt Date: 20040901
  Transmission Date: 20050211
  Serious: Yes (Hospitalization)
  Sender: FDA-Public Use
  Company Number: US-ROCHE-379612

PATIENT
  Age: 53 Year
  Sex: Female
  Weight: 84.8 kg

DRUGS (7)
  1. COPEGUS [Suspect]
     Indication: HEPATITIS C
     Route: 048
     Dates: start: 20040517, end: 20040628
  2. PEG-INTRON [Suspect]
     Indication: HEPATITIS C
     Route: 058
     Dates: start: 20040517, end: 20040628
  3. BUSPAR [Concomitant]
     Route: 048
  4. LACTULOSE [Concomitant]
     Route: 048
  5. LASIX [Concomitant]
     Route: 048
  6. POTASSIUM CHLORIDE [Concomitant]
     Route: 048
  7. PROZAC [Concomitant]
     Route: 048

REACTIONS (9)
  - ABDOMINAL PAIN [None]
  - BLOOD POTASSIUM DECREASED [None]
  - CARDIOMEGALY [None]
  - FATIGUE [None]
  - HAEMATEMESIS [None]
  - HAEMATOCHEZIA [None]
  - NAUSEA [None]
  - PANCYTOPENIA [None]
  - URINARY TRACT INFECTION [None]
